FAERS Safety Report 7993622-2 (Version None)
Quarter: 2011Q4

REPORT INFORMATION
  Report Type: 
  Country: None (occurrence: None)
  Receive Date: 20111219
  Receipt Date: 20111208
  Transmission Date: 20120403
  Serious: Yes (Other)
  Sender: FDA-Public Use
  Company Number: US-ASTRAZENECA-2011SE68542

PATIENT
  Age: 50 Year
  Sex: Male

DRUGS (2)
  1. DEPAKOTE [Concomitant]
  2. SEROQUEL [Suspect]
     Route: 048
     Dates: start: 20040101

REACTIONS (6)
  - PANCYTOPENIA [None]
  - ARTHRALGIA [None]
  - HEMIPLEGIA [None]
  - HIP DEFORMITY [None]
  - GAIT DISTURBANCE [None]
  - ANAEMIA VITAMIN B12 DEFICIENCY [None]
